FAERS Safety Report 6437643-X (Version None)
Quarter: 2009Q4

REPORT INFORMATION
  Report Type: 
  Country: None (occurrence: None)
  Receive Date: 20091112
  Receipt Date: 20091106
  Transmission Date: 20100525
  Serious: Yes (Hospitalization)
  Sender: FDA-Public Use
  Company Number: A0814237A

PATIENT
  Age: 68 Year
  Sex: Female

DRUGS (6)
  1. RHYTHMOL [Suspect]
     Indication: DRUG USE FOR UNKNOWN INDICATION
     Route: 065
     Dates: start: 20080101, end: 20091014
  2. MULTAQ [Suspect]
     Indication: ATRIAL FIBRILLATION
     Dosage: 400MG TWICE PER DAY
     Route: 048
     Dates: start: 20091015
  3. COLCHICINE [Concomitant]
  4. VALSARTAN [Concomitant]
  5. WARFARIN SODIUM [Concomitant]
  6. SIMVASTATIN [Concomitant]

REACTIONS (5)
  - ATRIAL FIBRILLATION [None]
  - HEART RATE DECREASED [None]
  - HEART RATE INCREASED [None]
  - LOSS OF CONSCIOUSNESS [None]
  - SLEEP APNOEA SYNDROME [None]
